FAERS Safety Report 5198442-2 (Version None)
Quarter: 2006Q4

REPORT INFORMATION
  Report Type: 
  Country: None (occurrence: None)
  Receive Date: 20061228
  Receipt Date: 20061228
  Transmission Date: 20070319
  Serious: Yes (Hospitalization)
  Sender: FDA-Public Use
  Company Number: None

PATIENT
  Age: 65 Year
  Sex: Female
  Weight: 56 kg

DRUGS (16)
  1. MORPHINE [Suspect]
     Indication: ARTHRALGIA
     Dosage: 15 MG PO BID
  2. MORPHINE [Suspect]
     Indication: PAIN
     Dosage: 15 MG PO BID
  3. PERCOCET [Suspect]
     Indication: BREAKTHROUGH PAIN
     Dosage: 5/325 TID PRN
  4. ASPIRIN [Concomitant]
  5. ACTOS [Concomitant]
  6. AMBIEN [Concomitant]
  7. COREG [Concomitant]
  8. DIALYVITE [Concomitant]
  9. DIOVAN [Concomitant]
  10. IRON [Concomitant]
  11. IMDUR [Concomitant]
  12. LEVOFLOXACIN [Concomitant]
  13. NORVASC [Concomitant]
  14. PRILOSEC [Concomitant]
  15. RENAGEL [Concomitant]
  16. ZOCOR [Concomitant]

REACTIONS (1)
  - BLISTER [None]
